FAERS Safety Report 7686239-0 (Version None)
Quarter: 2011Q3

REPORT INFORMATION
  Report Type: 
  Country: None (occurrence: None)
  Receive Date: 20110816
  Receipt Date: 20110812
  Transmission Date: 20111222
  Serious: Yes (Other)
  Sender: FDA-Public Use
  Company Number: NL-ABBOTT-11P-114-0843640-00

PATIENT
  Sex: Female
  Weight: 75 kg

DRUGS (12)
  1. LEVOMEPROMAZINE [Concomitant]
     Indication: PAIN
     Route: 048
     Dates: start: 20060101
  2. METHOTREXATE [Concomitant]
     Indication: RHEUMATOID ARTHRITIS
     Route: 048
  3. VENLAFAXINE [Concomitant]
     Indication: DEPRESSION
     Route: 048
     Dates: start: 20050101
  4. HUMIRA [Suspect]
     Indication: RHEUMATOID ARTHRITIS
     Route: 058
     Dates: start: 20040701
  5. OMEPRAZOLE [Concomitant]
     Indication: PROPHYLAXIS
     Route: 048
  6. OMEPRAZOLE [Concomitant]
     Indication: GASTRIC DISORDER
  7. CALCIUM CARBONATE W/COLECALCIFEROL [Concomitant]
     Indication: OSTEOPOROSIS PROPHYLAXIS
     Dosage: 1.25G/400IU, ONCE DAILY
     Route: 048
  8. PREDNISOLONE [Concomitant]
     Indication: RHEUMATOID ARTHRITIS
     Route: 048
  9. FOLIC ACID [Concomitant]
     Indication: RHEUMATOID ARTHRITIS
     Route: 048
  10. SIMVASTATIN [Concomitant]
     Indication: BLOOD CHOLESTEROL INCREASED
     Route: 048
  11. LORMETAZEPAM [Concomitant]
     Indication: INSOMNIA
     Route: 048
     Dates: start: 20060101
  12. TRAMADOL SR [Concomitant]
     Indication: PAIN
     Dosage: TWICE DAILY, AS NEEDED
     Route: 048

REACTIONS (5)
  - NASAL SEPTUM DISORDER [None]
  - TOOTH LOSS [None]
  - BONE LOSS [None]
  - ORAL PAIN [None]
  - TOOTH EXTRACTION [None]
